FAERS Safety Report 23314301 (Version 1)
Quarter: 2023Q4

REPORT INFORMATION
  Report Type: Spontaneous
  Country: US (occurrence: US)
  Receive Date: 20231219
  Receipt Date: 20231219
  Transmission Date: 20240110
  Serious: Yes (Hospitalization)
  Sender: FDA-Public Use
  Company Number: US-INCYTE CORPORATION-2023IN013109

PATIENT

DRUGS (3)
  1. JAKAFI [Suspect]
     Active Substance: RUXOLITINIB
     Indication: Neoplasm malignant
     Dosage: 20 MILLIGRAM, BID
     Route: 048
     Dates: start: 202102
  2. JAKAFI [Suspect]
     Active Substance: RUXOLITINIB
     Indication: Thyroid disorder
  3. JAKAFI [Suspect]
     Active Substance: RUXOLITINIB
     Indication: Essential thrombocythaemia

REACTIONS (2)
  - Illness [Unknown]
  - Off label use [Unknown]

NARRATIVE: CASE EVENT DATE: 20210201
